FAERS Safety Report 8515577 (Version 5)
Quarter: 2012Q4

REPORT INFORMATION
  Report Type: 
  Country: US (occurrence: US)
  Receive Date: 20120417
  Receipt Date: 20121108
  Transmission Date: 20130627
  Serious: Yes (Hospitalization, Other)
  Sender: FDA-Public Use
  Company Number: US-PFIZER INC-2012090436

PATIENT
  Age: 47 Year
  Sex: Female
  Weight: 53.06 kg

DRUGS (7)
  1. LYRICA [Suspect]
     Indication: FIBROMYALGIA
     Dosage: 75 mg, 2x/day
     Route: 048
  2. PREMARIN [Suspect]
     Indication: POSTOPERATIVE CARE
     Dosage: 1 mg, daily
     Dates: start: 1991
  3. PREMARIN [Suspect]
     Indication: HORMONE REPLACEMENT THERAPY
     Dosage: 1.25 mg, UNK
  4. PREMARIN [Suspect]
     Dosage: 1 mg, daily
  5. PROTONIX [Suspect]
     Indication: HIATAL HERNIA
     Dosage: 40 mg, daily
  6. PROTONIX [Suspect]
     Indication: GERD
  7. CYMBALTA [Concomitant]
     Dosage: UNK

REACTIONS (5)
  - Upper limb fracture [Unknown]
  - Hearing impaired [Unknown]
  - Fall [Unknown]
  - Pain [Unknown]
  - Swelling [Unknown]
